FAERS Safety Report 9993466 (Version 2)
Quarter: 2014Q1

REPORT INFORMATION
  Report Type: Spontaneous
  Country: DE (occurrence: DE)
  Receive Date: 20140310
  Receipt Date: 20140310
  Transmission Date: 20141002
  Serious: Yes (Hospitalization)
  Sender: FDA-Public Use
  Company Number: PHHY2013DE149243

PATIENT
  Age: 29 Year
  Sex: Male

DRUGS (4)
  1. VOLTAREN RESINAT 20 KAP [Suspect]
     Indication: BACK PAIN
     Dosage: 1 DF, QD
     Route: 048
     Dates: end: 20131112
  2. KATADOLON [Suspect]
     Indication: BACK PAIN
     Dosage: 1 DF, QD
     Route: 048
     Dates: end: 20131118
  3. NOVAMINSULFON [Concomitant]
     Indication: BACK PAIN
     Dosage: 2 DF, QD
     Route: 048
     Dates: start: 20131113, end: 20131119
  4. TRAMUNDIN [Concomitant]
     Indication: BACK PAIN
     Dosage: 2 DF, QD
     Route: 048
     Dates: start: 20131115, end: 20131119

REACTIONS (5)
  - Hepatic enzyme increased [Recovering/Resolving]
  - Transaminases increased [Unknown]
  - Liver disorder [Unknown]
  - Sciatica [Unknown]
  - Sleep disorder [Unknown]
